FAERS Safety Report 7753163-4 (Version None)
Quarter: 2011Q3

REPORT INFORMATION
  Report Type: 
  Country: None (occurrence: None)
  Receive Date: 20110915
  Receipt Date: 20110909
  Transmission Date: 20111222
  Serious: Yes (Other)
  Sender: FDA-Public Use
  Company Number: JP-PFIZER INC-2011206587

PATIENT
  Age: 56 Year
  Sex: Male

DRUGS (11)
  1. LYRICA [Suspect]
     Dosage: 150 MG, 2X/DAY
     Dates: start: 20110803, end: 20110830
  2. MUCOSTA [Concomitant]
     Dosage: UNK
     Route: 048
  3. DEPAS [Concomitant]
     Dosage: UNK
     Route: 048
  4. OPALMON [Concomitant]
     Dosage: UNK
     Route: 048
  5. VOLTAREN [Concomitant]
     Dosage: UNK
     Route: 048
  6. OLMESARTAN MEDOXOMIL [Concomitant]
     Dosage: UNK
     Route: 048
  7. METHYCOBAL [Concomitant]
     Dosage: UNK
     Route: 048
  8. LYRICA [Suspect]
     Dosage: 75 MG, 2X/DAY
     Dates: start: 20110107, end: 20110802
  9. LYRICA [Suspect]
     Dosage: 225 MG, 2X/DAY
     Dates: start: 20110831, end: 20110901
  10. NORVASC [Concomitant]
     Dosage: UNK
     Route: 048
  11. LYRICA [Suspect]
     Dosage: 75 MG, 1X/DAY
     Route: 048
     Dates: start: 20101120, end: 20110106

REACTIONS (1)
  - VISUAL FIELD DEFECT [None]
